FAERS Safety Report 4330624-1 (Version None)
Quarter: 2004Q2

REPORT INFORMATION
  Report Type: 
  Country: None (occurrence: None)
  Receive Date: 20040402
  Receipt Date: 20040325
  Transmission Date: 20050107
  Serious: Yes (Disabling)
  Sender: FDA-Public Use
  Company Number: NL-ROCHE-362791

PATIENT
  Age: 37 Year
  Sex: Female

DRUGS (7)
  1. XELODA [Suspect]
     Dosage: GIVEN DAYS ONE TO FOURTEEN IN A TWENTY ONE DAY CYCLE
     Route: 048
     Dates: start: 20031007, end: 20040212
  2. ELOXATIN [Suspect]
     Dosage: GIVEN ON DAY ONE OF A TWENTY ONE DAY CYCLE.
     Route: 042
     Dates: start: 20031007, end: 20040113
  3. PROGRAF [Concomitant]
     Route: 048
     Dates: start: 19980615
  4. OXYCONTIN [Concomitant]
     Route: 048
     Dates: start: 20031001
  5. VIOXX [Concomitant]
     Dates: start: 20031001
  6. OMEPRAZOLE [Concomitant]
  7. SEVREDOL [Concomitant]
     Route: 048
     Dates: start: 20031001

REACTIONS (2)
  - PARESIS [None]
  - UPPER MOTOR NEURONE LESION [None]
